FAERS Safety Report 16138582 (Version 2)
Quarter: 2019Q2

REPORT INFORMATION
  Report Type: Spontaneous
  Country: US (occurrence: US)
  Receive Date: 20190401
  Receipt Date: 20190405
  Transmission Date: 20190711
  Serious: Yes (Hospitalization)
  Sender: FDA-Public Use
  Company Number: US-HETERO CORPORATE-HET2019US00372

PATIENT
  Sex: Female

DRUGS (1)
  1. SILDENAFIL. [Suspect]
     Active Substance: SILDENAFIL
     Indication: PRODUCT USED FOR UNKNOWN INDICATION
     Dosage: UNK
     Route: 065

REACTIONS (4)
  - Fluid retention [Recovering/Resolving]
  - Swelling face [Not Recovered/Not Resolved]
  - Pain [Not Recovered/Not Resolved]
  - Heart rate abnormal [Not Recovered/Not Resolved]

NARRATIVE: CASE EVENT DATE: 20190129
